FAERS Safety Report 15919632 (Version 2)
Quarter: 2019Q1

REPORT INFORMATION
  Report Type: Spontaneous
  Country: US (occurrence: US)
  Receive Date: 20190205
  Receipt Date: 20190319
  Transmission Date: 20190417
  Serious: Yes (Hospitalization)
  Sender: FDA-Public Use
  Company Number: US-ASTRAZENECA-2019SE18775

PATIENT
  Age: 701 Month
  Sex: Female
  Weight: 64.9 kg

DRUGS (2)
  1. OXYGEN. [Concomitant]
     Active Substance: OXYGEN
     Indication: CHRONIC OBSTRUCTIVE PULMONARY DISEASE
  2. SYMBICORT [Suspect]
     Active Substance: BUDESONIDE\FORMOTEROL FUMARATE DIHYDRATE
     Indication: CHRONIC OBSTRUCTIVE PULMONARY DISEASE
     Dosage: 160/4.5 MCG., 2 PUFFS TWICE A DAY
     Route: 055
     Dates: start: 2002

REACTIONS (5)
  - Brain injury [Recovering/Resolving]
  - Dyspnoea [Unknown]
  - Road traffic accident [Recovering/Resolving]
  - Device malfunction [Unknown]
  - Skull fracture [Recovering/Resolving]

NARRATIVE: CASE EVENT DATE: 201803
